FAERS Safety Report 14009537 (Version 1)
Quarter: 2017Q3

REPORT INFORMATION
  Report Type: Spontaneous
  Country: CA (occurrence: CA)
  Receive Date: 20170925
  Receipt Date: 20170925
  Transmission Date: 20171128
  Serious: Yes (Hospitalization)
  Sender: FDA-Public Use
  Company Number: CA-TEVA-808160ACC

PATIENT
  Age: 29 Year
  Sex: Male

DRUGS (2)
  1. PURINETHOL [Suspect]
     Active Substance: MERCAPTOPURINE
     Indication: PRODUCT USED FOR UNKNOWN INDICATION
     Dosage: 50 MILLIGRAM DAILY; 50 MG ONCE DAILY (QD)
     Route: 065
     Dates: start: 20170328, end: 20170504
  2. PREDNISONE. [Suspect]
     Active Substance: PREDNISONE
     Indication: PRODUCT USED FOR UNKNOWN INDICATION
     Dosage: ONGOING, TAPER 40 MG TO 5 MG
     Route: 065
     Dates: start: 20170328

REACTIONS (2)
  - Drug ineffective [Unknown]
  - Abscess intestinal [Not Recovered/Not Resolved]
